FAERS Safety Report 6503438-1 (Version None)
Quarter: 2009Q4

REPORT INFORMATION
  Report Type: 
  Country: None (occurrence: None)
  Receive Date: 20091201
  Receipt Date: 20090805
  Transmission Date: 20100525
  Serious: Yes (Hospitalization, Disabling)
  Sender: FDA-Public Use
  Company Number: 2009SP017696

PATIENT
  Age: 35 Year
  Sex: Female
  Weight: 95.2554 kg

DRUGS (3)
  1. NUVARING [Suspect]
     Indication: CONTRACEPTION
     Dosage: 1 DF; QM; VAG
     Route: 067
     Dates: start: 20030301, end: 20060906
  2. NUVARING [Suspect]
     Indication: MENSTRUATION IRREGULAR
     Dosage: 1 DF; QM; VAG
     Route: 067
     Dates: start: 20030301, end: 20060906
  3. TYLENOL W/ CODEINE [Concomitant]

REACTIONS (9)
  - AMNESIA [None]
  - ANXIETY [None]
  - ERYTHEMA [None]
  - FALL [None]
  - HORDEOLUM [None]
  - JOINT SPRAIN [None]
  - PAIN IN EXTREMITY [None]
  - PULMONARY EMBOLISM [None]
  - UPPER RESPIRATORY TRACT INFECTION [None]
